FAERS Safety Report 9384184 (Version 1)
Quarter: 2013Q3

REPORT INFORMATION
  Report Type: Spontaneous
  Country: US (occurrence: US)
  Receive Date: 20130705
  Receipt Date: 20130705
  Transmission Date: 20140515
  Serious: Yes (Other)
  Sender: FDA-Public Use
  Company Number: US-ASTRAZENECA-2013SE49228

PATIENT
  Age: 69 Year
  Sex: Female
  Weight: 77.1 kg

DRUGS (7)
  1. PULMICORT FLEXHALER [Suspect]
     Indication: ASTHMA
     Dosage: 180 MCG, 2 PUFFS BID
     Route: 055
     Dates: start: 2007
  2. SIMVASTATIN [Concomitant]
     Indication: BLOOD CHOLESTEROL INCREASED
     Dates: start: 2001
  3. BYSTOLIC [Concomitant]
     Indication: HYPERTENSION
  4. BYSTOLIC [Concomitant]
     Indication: HEART RATE INCREASED
  5. MELOXICAM [Concomitant]
     Indication: ARTHRITIS
  6. VITAMIN D3 [Concomitant]
  7. FOLATE [Concomitant]

REACTIONS (3)
  - Cataract [Unknown]
  - Heart rate increased [Unknown]
  - Hypertension [Unknown]
